FAERS Safety Report 17682550 (Version 1)
Quarter: 2020Q2

REPORT INFORMATION
  Report Type: Spontaneous
  Country: DE (occurrence: DE)
  Receive Date: 20200418
  Receipt Date: 20200418
  Transmission Date: 20200714
  Serious: Yes (Hospitalization, Other)
  Sender: FDA-Public Use
  Company Number: NVSC2020DE100906

PATIENT
  Age: 1 Decade
  Sex: Female

DRUGS (8)
  1. ARSENIC TRIOXIDE. [Suspect]
     Active Substance: ARSENIC TRIOXIDE
     Indication: EPENDYMOMA MALIGNANT
     Dosage: FOR APPROX 10 WEEKS
     Route: 048
  2. ARSENIC TRIOXIDE. [Suspect]
     Active Substance: ARSENIC TRIOXIDE
     Dosage: FOR 1 WEEK
     Route: 042
  3. ARA-C [Concomitant]
     Active Substance: CYTARABINE
     Indication: EPENDYMOMA MALIGNANT
     Dosage: UNK
     Route: 016
  4. VINCRISTINE [Concomitant]
     Active Substance: VINCRISTINE
     Indication: EPENDYMOMA MALIGNANT
     Dosage: UNK
     Route: 065
  5. CERITINIB [Suspect]
     Active Substance: CERITINIB
     Indication: EPENDYMOMA MALIGNANT
     Dosage: 350 MG/M2
     Route: 065
  6. ACTINOMYCIN D [Concomitant]
     Active Substance: DACTINOMYCIN
     Indication: EPENDYMOMA MALIGNANT
     Dosage: UNK
     Route: 065
  7. ETOPOSIDE. [Concomitant]
     Active Substance: ETOPOSIDE
     Indication: EPENDYMOMA MALIGNANT
     Dosage: UNK
     Route: 065
  8. ADRIAMYCIN [Concomitant]
     Active Substance: DOXORUBICIN HYDROCHLORIDE
     Indication: EPENDYMOMA MALIGNANT
     Dosage: UNK
     Route: 065

REACTIONS (6)
  - Cerebral disorder [Recovered/Resolved]
  - Pain in extremity [Unknown]
  - Nausea [Unknown]
  - Off label use [Unknown]
  - Necrosis [Recovered/Resolved]
  - Cerebral haemorrhage [Recovered/Resolved]
